FAERS Safety Report 19932424 (Version 1)
Quarter: 2021Q4

REPORT INFORMATION
  Report Type: Spontaneous
  Country: US (occurrence: US)
  Receive Date: 20211007
  Receipt Date: 20211007
  Transmission Date: 20220303
  Serious: No
  Sender: FDA-Public Use
  Company Number: None

PATIENT
  Age: 17 Year
  Sex: Male
  Weight: 63 kg

DRUGS (6)
  1. PRIVIGEN [Suspect]
     Active Substance: HUMAN IMMUNOGLOBULIN G
     Indication: Immunodeficiency common variable
     Dosage: ?          OTHER FREQUENCY:EVERY 3-4 WEEKS;
     Route: 042
  2. Acetaminophen 650 mg po [Concomitant]
  3. Diphenhydramine 25 mg po [Concomitant]
  4. Clobazam 20 mg po [Concomitant]
  5. Flonase 50 mcg nasal [Concomitant]
  6. Vimpat 200 mg po [Concomitant]

REACTIONS (2)
  - Rash [None]
  - Infusion related reaction [None]

NARRATIVE: CASE EVENT DATE: 20210930
